FAERS Safety Report 5940812-6 (Version None)
Quarter: 2008Q4

REPORT INFORMATION
  Report Type: 
  Country: None (occurrence: None)
  Receive Date: 20081030
  Receipt Date: 20081015
  Transmission Date: 20090506
  Serious: Yes (Other)
  Sender: FDA-Public Use
  Company Number: 8038425

PATIENT
  Age: 42 Year
  Sex: Male

DRUGS (4)
  1. PREDNISOLONE [Suspect]
     Indication: CONJUNCTIVITIS
     Dosage: PO
     Route: 048
     Dates: start: 20040501
  2. AZATHIOPRINE [Suspect]
     Indication: CONJUNCTIVITIS
     Dates: start: 20040301
  3. DAPSONE [Suspect]
     Indication: CONJUNCTIVITIS
     Dates: start: 20040401
  4. MYCOPHENOLATE SODIUM [Suspect]
     Indication: CONJUNCTIVITIS
     Dates: start: 20040501

REACTIONS (11)
  - CORNEAL PERFORATION [None]
  - DRUG INTOLERANCE [None]
  - EYE INFECTION STAPHYLOCOCCAL [None]
  - INSOMNIA [None]
  - KERATITIS BACTERIAL [None]
  - MORAXELLA INFECTION [None]
  - NAUSEA [None]
  - PSEUDOMONAS INFECTION [None]
  - REBOUND EFFECT [None]
  - THERAPEUTIC RESPONSE DECREASED [None]
  - VISUAL ACUITY REDUCED [None]
